FAERS Safety Report 13928201 (Version 3)
Quarter: 2018Q3

REPORT INFORMATION
  Report Type: Spontaneous
  Country: DE (occurrence: DE)
  Receive Date: 20170901
  Receipt Date: 20180911
  Transmission Date: 20181010
  Serious: Yes (Life-Threatening, Hospitalization, Other)
  Sender: FDA-Public Use
  Company Number: DE-ALKEM LABORATORIES LIMITED-DE-ALKEM-2017-00566

PATIENT
  Age: 25 Year
  Sex: Female
  Weight: 65 kg

DRUGS (4)
  1. QUETIAPINE FUMARATE. [Suspect]
     Active Substance: QUETIAPINE FUMARATE
     Indication: BORDERLINE PERSONALITY DISORDER
     Dosage: UNK, TABLET
     Route: 048
  2. QUETIAPINE FUMARATE. [Suspect]
     Active Substance: QUETIAPINE FUMARATE
     Indication: DEPRESSION
     Dosage: 10 MG, TABLET (POTENTIALLY LETHAL DOSE, 150 MG/KG BODYWEIGHT)
     Route: 048
  3. AMITRIPTYLINE [Suspect]
     Active Substance: AMITRIPTYLINE
     Indication: DEPRESSION
     Dosage: UNK, TABLET
     Route: 048
  4. AMITRIPTYLINE [Suspect]
     Active Substance: AMITRIPTYLINE
     Indication: BORDERLINE PERSONALITY DISORDER
     Dosage: 5.5 MG, TABLET POTENTIALLY LETHAL DOSE, 85 MG/KG BODYWEIGHT
     Route: 048

REACTIONS (10)
  - Cardiogenic shock [Recovered/Resolved]
  - Bradypnoea [Unknown]
  - Anticholinergic syndrome [Recovered/Resolved]
  - Ventricular tachycardia [Recovered/Resolved]
  - Overdose [Unknown]
  - Electrocardiogram QT prolonged [Recovering/Resolving]
  - Suicide attempt [Recovered/Resolved]
  - Toxicity to various agents [Recovering/Resolving]
  - Coma [Recovered/Resolved]
  - Body temperature decreased [Recovered/Resolved]
